FAERS Safety Report 6313937-3 (Version None)
Quarter: 2009Q3

REPORT INFORMATION
  Report Type: 
  Country: None (occurrence: None)
  Receive Date: 20090818
  Receipt Date: 20090810
  Transmission Date: 20100115
  Serious: Yes (Other)
  Sender: FDA-Public Use
  Company Number: DE-AMGEN-QUU353479

PATIENT
  Sex: Female

DRUGS (2)
  1. NEULASTA [Suspect]
     Indication: CHEMOTHERAPY
     Route: 058
     Dates: start: 20090627
  2. UNSPECIFIED ANTINEOPLASTIC AGENT [Concomitant]

REACTIONS (13)
  - AGITATION [None]
  - ASTHENIA [None]
  - DYSPHAGIA [None]
  - FEAR [None]
  - HALLUCINATION, VISUAL [None]
  - HYPERHIDROSIS [None]
  - INSOMNIA [None]
  - NAUSEA [None]
  - NERVOUS SYSTEM DISORDER [None]
  - PARAESTHESIA [None]
  - SWELLING FACE [None]
  - TACHYCARDIA [None]
  - VOMITING [None]
